FAERS Safety Report 25732955 (Version 1)
Quarter: 2025Q3

REPORT INFORMATION
  Report Type: Spontaneous
  Country: EU (occurrence: EU)
  Receive Date: 20250828
  Receipt Date: 20250828
  Transmission Date: 20251021
  Serious: Yes (Other)
  Sender: CELLTRION
  Company Number: EU-BIOCON BIOLOGICS LIMITED-BBL2025004073

PATIENT

DRUGS (3)
  1. BEVACIZUMAB [Suspect]
     Active Substance: BEVACIZUMAB
     Indication: Ovarian cancer stage IV
     Route: 065
  2. CISPLATIN [Concomitant]
     Active Substance: CISPLATIN
     Indication: Ovarian cancer stage IV
     Route: 065
  3. GEMCITABINE [Concomitant]
     Active Substance: GEMCITABINE
     Indication: Ovarian cancer stage IV
     Route: 065

REACTIONS (6)
  - Atherosclerotic plaque rupture [Unknown]
  - Chronic kidney disease [Unknown]
  - Condition aggravated [Unknown]
  - Coronary artery stenosis [Recovered/Resolved]
  - Thrombosis [Unknown]
  - Hypertension [Unknown]
